FAERS Safety Report 5092869-5 (Version None)
Quarter: 2006Q3

REPORT INFORMATION
  Report Type: 
  Country: None (occurrence: None)
  Receive Date: 20060828
  Receipt Date: 20060825
  Transmission Date: 20061208
  Serious: Yes (Hospitalization, Other)
  Sender: FDA-Public Use
  Company Number: FRWYE782325AUG06

PATIENT
  Age: 21 Year
  Sex: Female

DRUGS (1)
  1. ADVIL [Suspect]
     Dosage: 2 TABLET 2X PER 1 DAY ORAL
     Route: 048
     Dates: start: 20060115, end: 20060115

REACTIONS (3)
  - ANGIONEUROTIC OEDEMA [None]
  - PHARYNGOLARYNGEAL DISCOMFORT [None]
  - URTICARIA GENERALISED [None]
